FAERS Safety Report 9626141 (Version 6)
Quarter: 2014Q1

REPORT INFORMATION
  Report Type: Spontaneous
  Country: US (occurrence: US)
  Receive Date: 20131016
  Receipt Date: 20140311
  Transmission Date: 20141002
  Serious: Yes (Other)
  Sender: FDA-Public Use
  Company Number: US-BAYER-2013-121184

PATIENT
  Age: 71 Year
  Sex: Male

DRUGS (2)
  1. STIVARGA [Suspect]
     Indication: COLON CANCER METASTATIC
     Dosage: 120 MG, QD
     Route: 048
     Dates: start: 20130920, end: 20130926
  2. STIVARGA [Suspect]
     Indication: COLON CANCER METASTATIC
     Dosage: 80 MG, QD
     Route: 048
     Dates: start: 20131017, end: 20140101

REACTIONS (6)
  - Blood bilirubin increased [Recovered/Resolved]
  - Pyrexia [Recovered/Resolved]
  - Platelet count decreased [Recovered/Resolved]
  - Hepatic function abnormal [Not Recovered/Not Resolved]
  - Incision site haemorrhage [Not Recovered/Not Resolved]
  - Colon cancer [None]
